FAERS Safety Report 17969148 (Version 2)
Quarter: 2022Q2

REPORT INFORMATION
  Report Type: Spontaneous
  Country: US (occurrence: US)
  Receive Date: 20200701
  Receipt Date: 20220614
  Transmission Date: 20220721
  Serious: No
  Sender: FDA-Public Use
  Company Number: US-PFM-2020-01478

PATIENT
  Sex: Female
  Weight: 6.349 kg

DRUGS (3)
  1. HEMANGEOL [Suspect]
     Active Substance: PROPRANOLOL HYDROCHLORIDE
     Indication: Infantile haemangioma
     Dosage: 3.4 MG/KG/DAY
     Route: 065
     Dates: start: 20190828
  2. HEMANGEOL [Suspect]
     Active Substance: PROPRANOLOL HYDROCHLORIDE
     Dosage: 2.8 ML, BID (2/DAY)
     Route: 065
  3. HEMANGEOL [Suspect]
     Active Substance: PROPRANOLOL HYDROCHLORIDE
     Dosage: 3.6 ML, BID (2/DAY)
     Route: 065

REACTIONS (7)
  - Anisocoria [Unknown]
  - Hypoglycaemia [Recovered/Resolved]
  - Constipation [Recovered/Resolved]
  - Decreased appetite [Recovered/Resolved]
  - Irritability [Recovered/Resolved]
  - Off label use [Unknown]
  - Product use issue [Unknown]
